FAERS Safety Report 9422384 (Version 1)
Quarter: 2013Q3

REPORT INFORMATION
  Report Type: Spontaneous
  Country: US (occurrence: US)
  Receive Date: 20130726
  Receipt Date: 20130726
  Transmission Date: 20140515
  Serious: Yes (Hospitalization)
  Sender: FDA-Public Use
  Company Number: US-PFIZER INC-2013103843

PATIENT
  Age: 68 Year
  Sex: Female
  Weight: 61.09 kg

DRUGS (14)
  1. LYRICA [Suspect]
     Indication: FIBROMYALGIA
     Dosage: 150 MG, 2X/DAY
     Route: 048
  2. FERROUS GLUCONATE [Concomitant]
     Dosage: UNK, 2X/WEEK
     Route: 048
  3. FLUOXETINE HYDROCHLORIDE [Concomitant]
     Dosage: 80 MG (TAKING 2 CAPSULES OF 40 MG) DAILY
     Route: 048
     Dates: start: 20110131
  4. MOMETASONE FUROATE [Concomitant]
     Dosage: UNK, 1X/DAY (APPLY SPARINGLY TO AFFECTED AREA)
  5. PRENATAL TABS [Concomitant]
     Dosage: 1 DF, 1X/DAY
  6. VITAMIN B12 [Concomitant]
     Dosage: 1 DF, 1X/DAY
  7. AZITHROMYCIN [Concomitant]
     Indication: BRONCHITIS
     Dosage: UNK, (TAKE 2 TABLETS ON DAY 1 THEN TAKE 1 TABLET A DAY FOR 4 DAYS)
     Dates: start: 20130115
  8. VENTOLIN HFA [Concomitant]
     Indication: BRONCHITIS
     Dosage: UNK, (INHALE 1 TO 2 PUFFS EVERY 6 HOURS) AS NEEDED
     Dates: start: 20120730
  9. VENTOLIN HFA [Concomitant]
     Indication: DYSPNOEA
  10. TEMAZEPAM [Concomitant]
     Indication: PAIN
     Dosage: UNK, (1 TO 2 CAPSULES AT BEDTIME)
     Route: 048
  11. TRAMADOL HYDROCHLORIDE [Concomitant]
     Indication: PAIN
     Dosage: 1 DF, 4X/DAY (AS NEEDED)
     Route: 048
  12. TRAMADOL HYDROCHLORIDE [Concomitant]
     Indication: FIBROMYALGIA
  13. SIMVASTATIN [Concomitant]
     Indication: HYPERLIPIDAEMIA
     Dosage: 20 MG, 1X/DAY
     Route: 048
     Dates: start: 20110131
  14. METOPROLOL TARTRATE [Concomitant]
     Indication: HYPERTENSION
     Dosage: 1 TABLET (50MG) EVERY MORNING AND 1/2 TABLET IN EVENING
     Route: 048
     Dates: start: 20110204

REACTIONS (2)
  - Mitral valve disease [Unknown]
  - Tricuspid valve disease [Unknown]
